FAERS Safety Report 13263841 (Version 2)
Quarter: 2017Q1

REPORT INFORMATION
  Report Type: Spontaneous
  Country: US (occurrence: US)
  Receive Date: 20170223
  Receipt Date: 20170303
  Transmission Date: 20170428
  Serious: No
  Sender: FDA-Public Use
  Company Number: US-PFIZER INC-2017076800

PATIENT
  Sex: Female

DRUGS (1)
  1. CHANTIX [Suspect]
     Active Substance: VARENICLINE TARTRATE
     Indication: EX-TOBACCO USER
     Dosage: UNK

REACTIONS (5)
  - Disturbance in attention [Unknown]
  - Confusional state [Unknown]
  - Mental disorder [Unknown]
  - Agitation [Unknown]
  - Amnesia [Unknown]
